FAERS Safety Report 5370792-6 (Version None)
Quarter: 2007Q2

REPORT INFORMATION
  Report Type: 
  Country: None (occurrence: None)
  Receive Date: 20070626
  Receipt Date: 20070615
  Transmission Date: 20071010
  Serious: Yes (Hospitalization)
  Sender: FDA-Public Use
  Company Number: B0475732C

PATIENT
  Sex: Female
  Weight: 2.2 kg

DRUGS (8)
  1. COMBIVIR [Suspect]
     Indication: HIV INFECTION
     Dosage: 1TAB TWICE PER DAY
     Dates: end: 20070430
  2. KALETRA [Suspect]
     Indication: HIV INFECTION
     Dosage: 2TAB TWICE PER DAY
     Dates: end: 20070526
  3. INVIRASE [Suspect]
     Indication: HIV INFECTION
     Dosage: 2CAP TWICE PER DAY
     Dates: start: 20070430, end: 20070526
  4. KALETRA [Suspect]
     Dosage: 30MG THREE TIMES PER DAY
     Route: 048
     Dates: start: 20070526
  5. SPASFON [Concomitant]
     Dates: start: 20070301
  6. TARDYFERON B9 [Concomitant]
     Dates: start: 20070301
  7. VITAMIN K [Concomitant]
     Route: 065
     Dates: start: 20070526
  8. KAYEXALATE [Concomitant]
     Route: 065
     Dates: start: 20070530

REACTIONS (11)
  - ABDOMINAL DISCOMFORT [None]
  - ABDOMINAL DISTENSION [None]
  - DRUG EXPOSURE DURING PREGNANCY [None]
  - HAEMOGLOBIN DECREASED [None]
  - HAEMOLYSIS [None]
  - HYPERKALAEMIA [None]
  - HYPERLACTACIDAEMIA [None]
  - PREMATURE BABY [None]
  - RENAL FAILURE [None]
  - RETICULOCYTE COUNT INCREASED [None]
  - WHITE BLOOD CELL COUNT DECREASED [None]
